FAERS Safety Report 8392329-X (Version None)
Quarter: 2012Q2

REPORT INFORMATION
  Report Type: 
  Country: None (occurrence: None)
  Receive Date: 20120529
  Receipt Date: 20120514
  Transmission Date: 20120825
  Serious: Yes (Death, Other)
  Sender: FDA-Public Use
  Company Number: CH-ROCHE-684305

PATIENT

DRUGS (2)
  1. TEMOZOLOMIDE [Suspect]
     Indication: METASTATIC MALIGNANT MELANOMA
     Dosage: ON DAYS 1-7 EVERY 14 DAYS
     Route: 048
  2. AVASTIN [Suspect]
     Indication: METASTATIC MALIGNANT MELANOMA
     Dosage: OVER 90 MIN FOR THE FIRST INFUSION, 60 MIN FOR THE SECOND AND 30 MIN FOR THE THIRD AND SUBSEQUENT IN
     Route: 042

REACTIONS (28)
  - PALMAR-PLANTAR ERYTHRODYSAESTHESIA SYNDROME [None]
  - NEUTROPENIA [None]
  - FATIGUE [None]
  - DECREASED APPETITE [None]
  - FRACTURE [None]
  - PAIN [None]
  - ABDOMINAL NEOPLASM [None]
  - LYMPHOPENIA [None]
  - NAUSEA [None]
  - HAEMORRHAGE [None]
  - ASPARTATE AMINOTRANSFERASE INCREASED [None]
  - INTESTINAL PERFORATION [None]
  - THROMBOCYTOPENIA [None]
  - LUNG INFECTION [None]
  - LEUKOPENIA [None]
  - VOMITING [None]
  - THROMBOSIS [None]
  - INFECTION [None]
  - BLOOD ALKALINE PHOSPHATASE INCREASED [None]
  - HYPERTENSION [None]
  - BLOOD BILIRUBIN INCREASED [None]
  - ALANINE AMINOTRANSFERASE INCREASED [None]
  - CONFUSIONAL STATE [None]
  - EMBOLISM [None]
  - DIABETES MELLITUS [None]
  - TRISMUS [None]
  - CONSTIPATION [None]
  - DIARRHOEA [None]
